FAERS Safety Report 20039362 (Version 1)
Quarter: 2021Q4

REPORT INFORMATION
  Report Type: Spontaneous
  Country: CA (occurrence: CA)
  Receive Date: 20211105
  Receipt Date: 20211105
  Transmission Date: 20220303
  Serious: Yes (Other)
  Sender: FDA-Public Use
  Company Number: CA-TEVA-2021-CA-1971826

PATIENT
  Age: 63 Year
  Sex: Female

DRUGS (10)
  1. QUETIAPINE FUMARATE [Interacting]
     Active Substance: QUETIAPINE FUMARATE
     Indication: Fibromyalgia
     Route: 065
  2. QUETIAPINE FUMARATE [Interacting]
     Active Substance: QUETIAPINE FUMARATE
     Indication: Bipolar disorder
     Route: 048
  3. QUETIAPINE FUMARATE [Interacting]
     Active Substance: QUETIAPINE FUMARATE
     Indication: Bipolar II disorder
     Route: 048
  4. QUETIAPINE FUMARATE [Interacting]
     Active Substance: QUETIAPINE FUMARATE
     Indication: Affective disorder
     Route: 065
  5. LITHIUM CARBONATE [Interacting]
     Active Substance: LITHIUM CARBONATE
     Indication: Bipolar disorder
     Route: 065
  6. LITHIUM CARBONATE [Interacting]
     Active Substance: LITHIUM CARBONATE
     Indication: Bipolar II disorder
     Route: 065
  7. LITHIUM CARBONATE [Interacting]
     Active Substance: LITHIUM CARBONATE
     Indication: Affective disorder
     Route: 065
  8. TRAMADOL [Interacting]
     Active Substance: TRAMADOL
     Indication: Fibromyalgia
     Dosage: 100 MILLIGRAM DAILY;
     Route: 065
  9. TRAMADOL [Interacting]
     Active Substance: TRAMADOL
     Route: 065
  10. LITHIUM [Concomitant]
     Active Substance: LITHIUM
     Indication: Bipolar II disorder
     Route: 065

REACTIONS (4)
  - Drug interaction [Recovered/Resolved]
  - Hypomania [Recovered/Resolved]
  - Serotonin syndrome [Recovered/Resolved]
  - Drug ineffective [Recovered/Resolved]
